FAERS Safety Report 10395053 (Version 2)
Quarter: 2014Q2

REPORT INFORMATION
  Report Type: Spontaneous
  Country: US (occurrence: None)
  Receive Date: 20130328
  Receipt Date: 20140604
  Transmission Date: 20141212
  Serious: Yes (Hospitalization)
  Sender: FDA-Public Use
  Company Number: 20120614CINRY3056

PATIENT
  Age: 58 Year
  Sex: Male
  Weight: 85.73 kg

DRUGS (13)
  1. CINRYZE (C1 ESTERASE INHIBITOR (HUMAN)) [Suspect]
     Indication: HEREDITARY ANGIOEDEMA
     Route: 042
     Dates: start: 20080228
  2. CINRYZE (C1 ESTERASE INHIBITOR (HUMAN)) [Suspect]
     Route: 042
     Dates: start: 20080228
  3. DURAGESIC PATCH (FENTANYL) [Concomitant]
  4. ENDOCET (OXYCOCET) (TABLET) (PARACETAMOL, OXYCODONE HYDROCHLORIDE) [Concomitant]
  5. DILAUDID (HYDROMORPHONE HYDROCHLORIDE) [Concomitant]
  6. SOMA (CARISOPRODOL) [Concomitant]
  7. LUNESTA (ESZOPICLONE) [Concomitant]
  8. BYSTOLIC (NEBIVOLOL HYDROCHLORIDE) [Concomitant]
  9. BENICAR HCT [Concomitant]
  10. OMEPRAZOLE [Concomitant]
  11. ZOCOR (SIMVASTATIN) [Concomitant]
  12. PRISTIQ (DESVENLAFAXINE SUCCINATE) [Concomitant]
  13. WELLBUTRIN SR (BUPROPION HYDROCHLORIDE) [Concomitant]

REACTIONS (3)
  - Hereditary angioedema [None]
  - Malaise [None]
  - Inappropriate schedule of drug administration [None]
